FAERS Safety Report 16568891 (Version 1)
Quarter: 2019Q3

REPORT INFORMATION
  Report Type: Spontaneous
  Country: US (occurrence: US)
  Receive Date: 20190531
  Receipt Date: 20190531
  Transmission Date: 20191004
  Serious: Yes (Other)
  Sender: FDA-Public Use
  Company Number: None

PATIENT
  Age: 74 Year
  Sex: Male
  Weight: 95.25 kg

DRUGS (1)
  1. BUPRENORPHINE. [Suspect]
     Active Substance: BUPRENORPHINE
     Indication: BACK PAIN
     Dosage: ?          OTHER FREQUENCY:1 AS NEEDED ;?
     Dates: start: 20190412

REACTIONS (6)
  - Suspected counterfeit product [None]
  - Poisoning [None]
  - Dizziness [None]
  - Oedema peripheral [None]
  - Nausea [None]
  - Visual acuity reduced [None]

NARRATIVE: CASE EVENT DATE: 20190412
